FAERS Safety Report 21219001 (Version 1)
Quarter: 2022Q3

REPORT INFORMATION
  Report Type: Report from Study
  Country: CA (occurrence: CA)
  Receive Date: 20220816
  Receipt Date: 20220816
  Transmission Date: 20221027
  Serious: Yes (Other)
  Sender: FDA-Public Use
  Company Number: CA-GILEAD-2022-0578324

PATIENT
  Sex: Female

DRUGS (2)
  1. SACITUZUMAB GOVITECAN [Suspect]
     Active Substance: SACITUZUMAB GOVITECAN
     Indication: Triple negative breast cancer
     Dosage: 920 MG, C1 D1
     Route: 042
     Dates: start: 20220412
  2. SACITUZUMAB GOVITECAN [Suspect]
     Active Substance: SACITUZUMAB GOVITECAN
     Dosage: 900 MG
     Route: 042
     Dates: start: 20220726, end: 20220726

REACTIONS (3)
  - Neutropenia [Unknown]
  - Disease progression [Unknown]
  - Inappropriate schedule of product administration [Unknown]
